FAERS Safety Report 12289846 (Version 1)
Quarter: 2016Q2

REPORT INFORMATION
  Report Type: Spontaneous
  Country: FR (occurrence: FR)
  Receive Date: 20160421
  Receipt Date: 20160421
  Transmission Date: 20160815
  Serious: Yes (Hospitalization)
  Sender: FDA-Public Use
  Company Number: FR-PFIZER INC-2016214950

PATIENT
  Age: 86 Year
  Sex: Female

DRUGS (6)
  1. PROLIA [Suspect]
     Active Substance: DENOSUMAB
     Indication: OSTEOPOROSIS
     Dosage: 1 DF EVERY 6 MONTHS
     Route: 058
     Dates: start: 201404, end: 20151011
  2. AMIODARONE [Concomitant]
     Active Substance: AMIODARONE
  3. PRAVASTATIN SODIUM. [Concomitant]
     Active Substance: PRAVASTATIN SODIUM
  4. ALPRESS [Suspect]
     Active Substance: PRAZOSIN
     Indication: HYPERTENSION
     Dosage: UNK
     Route: 048
     Dates: end: 20151011
  5. CELIPROLOL [Suspect]
     Active Substance: CELIPROLOL
     Indication: HYPERTENSION
     Dosage: UNK
     Route: 048
     Dates: end: 20151011
  6. COTAREG [Suspect]
     Active Substance: HYDROCHLOROTHIAZIDE\VALSARTAN
     Indication: HYPERTENSION
     Dosage: UNK
     Route: 048
     Dates: end: 20151011

REACTIONS (1)
  - Femur fracture [Recovered/Resolved with Sequelae]

NARRATIVE: CASE EVENT DATE: 20151011
